FAERS Safety Report 6605185-4 (Version None)
Quarter: 2010Q1

REPORT INFORMATION
  Report Type: 
  Country: None (occurrence: None)
  Receive Date: 20100226
  Receipt Date: 20100211
  Transmission Date: 20100710
  Serious: Yes (Hospitalization, Other)
  Sender: FDA-Public Use
  Company Number: US-PFIZER INC-2009230535

PATIENT
  Sex: Female
  Weight: 86.182 kg

DRUGS (14)
  1. SOLU-MEDROL [Suspect]
     Indication: MULTIPLE SCLEROSIS
     Dosage: 1 G, SINGLE
     Route: 042
     Dates: start: 20080128, end: 20080128
  2. SOLU-MEDROL [Suspect]
     Dosage: 1 G, SINGLE
     Route: 042
     Dates: start: 20080229, end: 20080229
  3. SOLU-MEDROL [Suspect]
     Dosage: 1 G/100 CC NORMAL SALINE
     Route: 042
     Dates: start: 20081212, end: 20081212
  4. SOLU-MEDROL [Suspect]
     Dosage: 1 G/100CC NORMAL SALINE
     Route: 042
     Dates: start: 20090109, end: 20090109
  5. SOLU-MEDROL [Suspect]
     Dosage: 1 G/100 CC NORMAL SALINE
     Route: 042
     Dates: start: 20090213, end: 20090213
  6. SOLU-MEDROL [Suspect]
     Dosage: 1 G/100 CC NORMAL SALINE
     Route: 042
     Dates: start: 20090312, end: 20090312
  7. SOLU-MEDROL [Suspect]
     Dosage: UNK UG, UNK
     Route: 042
     Dates: start: 20090417, end: 20090417
  8. SOLU-MEDROL [Suspect]
     Dosage: UNK
     Route: 042
     Dates: start: 20090603, end: 20090603
  9. REBIF [Suspect]
     Indication: MULTIPLE SCLEROSIS
     Dosage: 44 MCG, 3 IN 1 WEEK
     Route: 058
     Dates: start: 20081212
  10. BETASERON [Suspect]
     Indication: MULTIPLE SCLEROSIS
     Dates: start: 20070901
  11. TYSABRI [Suspect]
     Dosage: UNK
  12. LYRICA [Concomitant]
     Dosage: UNK
  13. VITAMINS [Concomitant]
     Dosage: UNK
  14. LEVETIRACETAM [Concomitant]
     Dosage: UNK

REACTIONS (17)
  - ABDOMINAL PAIN [None]
  - ALTERED STATE OF CONSCIOUSNESS [None]
  - ANAPHYLACTIC REACTION [None]
  - CAMPYLOBACTER INTESTINAL INFECTION [None]
  - CENTRAL NERVOUS SYSTEM LESION [None]
  - COMPLEX PARTIAL SEIZURES [None]
  - DIARRHOEA [None]
  - DIZZINESS [None]
  - DYSARTHRIA [None]
  - DYSGRAPHIA [None]
  - ELECTROENCEPHALOGRAM ABNORMAL [None]
  - INFLUENZA LIKE ILLNESS [None]
  - MULTIPLE SCLEROSIS [None]
  - NAUSEA [None]
  - SWELLING [None]
  - URTICARIA [None]
  - VOMITING [None]
